FAERS Safety Report 13829257 (Version 1)
Quarter: 2017Q3

REPORT INFORMATION
  Report Type: Spontaneous
  Country: US (occurrence: US)
  Receive Date: 20170802
  Receipt Date: 20170802
  Transmission Date: 20171127
  Serious: Yes (Hospitalization)
  Sender: FDA-Public Use
  Company Number: None

PATIENT
  Age: 33 Year
  Sex: Male
  Weight: 84.2 kg

DRUGS (2)
  1. EPINEPHRINE. [Suspect]
     Active Substance: EPINEPHRINE
     Indication: NASAL SEPTAL OPERATION
     Dates: start: 20161223, end: 20161223
  2. FENTANYL. [Suspect]
     Active Substance: FENTANYL
     Indication: NASAL SEPTAL OPERATION
     Route: 042
     Dates: start: 20161223, end: 20161223

REACTIONS (2)
  - Tachycardia [None]
  - Hypertension [None]

NARRATIVE: CASE EVENT DATE: 20161223
